FAERS Safety Report 8956333 (Version 1)
Quarter: 2012Q4

REPORT INFORMATION
  Report Type: 
  Country: US (occurrence: US)
  Receive Date: 20121210
  Receipt Date: 20121210
  Transmission Date: 20130627
  Serious: Yes (Other)
  Sender: FDA-Public Use
  Company Number: US-SANOFI-AVENTIS-2012SA088296

PATIENT
  Sex: Female

DRUGS (1)
  1. DEMEROL [Suspect]
     Route: 065

REACTIONS (1)
  - Loss of consciousness [Unknown]
